FAERS Safety Report 6932727-1 (Version None)
Quarter: 2010Q3

REPORT INFORMATION
  Report Type: 
  Country: None (occurrence: None)
  Receive Date: 20100813
  Receipt Date: 20100629
  Transmission Date: 20110219
  Serious: No
  Sender: FDA-Public Use
  Company Number: 1000014795

PATIENT
  Sex: Female

DRUGS (8)
  1. SAVELLA [Suspect]
     Indication: FIBROMYALGIA
     Dosage: 12.5 MG (12.5 MG, 1 IN 1D), ORAL; 25 MG (12.5 MG,2 IN 1 D), ORAL; 50 MG (25 MG,2 IN 1 D), ORAL
     Route: 048
     Dates: start: 20100618, end: 20100618
  2. SAVELLA [Suspect]
     Indication: FIBROMYALGIA
     Dosage: 12.5 MG (12.5 MG, 1 IN 1D), ORAL; 25 MG (12.5 MG,2 IN 1 D), ORAL; 50 MG (25 MG,2 IN 1 D), ORAL
     Route: 048
     Dates: start: 20100619, end: 20100620
  3. SAVELLA [Suspect]
     Indication: FIBROMYALGIA
     Dosage: 12.5 MG (12.5 MG, 1 IN 1D), ORAL; 25 MG (12.5 MG,2 IN 1 D), ORAL; 50 MG (25 MG,2 IN 1 D), ORAL
     Route: 048
     Dates: start: 20100621, end: 20100624
  4. SAVELLA [Suspect]
     Indication: FIBROMYALGIA
     Dosage: 100 MG (50 MG,2 IN 1 D),ORAL
     Route: 048
     Dates: start: 20100625, end: 20100628
  5. ADVAIR (INHALANT) [Concomitant]
  6. DARVOCET [Concomitant]
  7. AMBIEN (10 MILLIGRAM, TABLETS) [Concomitant]
  8. MACROBID [Suspect]
     Indication: URINARY TRACT INFECTION
     Dosage: 200 MG(100 MG, 2 IN 1 D), ORAL
     Dates: start: 20100621, end: 20100628

REACTIONS (1)
  - SERUM SICKNESS [None]
